FAERS Safety Report 5463002-2 (Version None)
Quarter: 2007Q3

REPORT INFORMATION
  Report Type: 
  Country: None (occurrence: None)
  Receive Date: 20070918
  Receipt Date: 20070918
  Transmission Date: 20080115
  Serious: Yes (Other)
  Sender: FDA-Public Use
  Company Number: None

PATIENT
  Age: 46 Year
  Sex: Male
  Weight: 81.6475 kg

DRUGS (4)
  1. LEVAQUIN [Suspect]
     Indication: PROSTATE INFECTION
     Dosage: 500 MG DAILY PO
     Route: 048
     Dates: start: 20070101, end: 20070114
  2. LEVAQUIN [Suspect]
     Indication: PROSTATE INFECTION
     Dosage: 500 MG DAILY PO
     Route: 048
     Dates: start: 20070401, end: 20070430
  3. CIPRO [Concomitant]
  4. DOXYCYCLINE [Concomitant]

REACTIONS (4)
  - HOT FLUSH [None]
  - NO THERAPEUTIC RESPONSE [None]
  - PARAESTHESIA [None]
  - TENDONITIS [None]
